FAERS Safety Report 10402160 (Version 1)
Quarter: 2014Q3

REPORT INFORMATION
  Report Type: Spontaneous
  Country: US (occurrence: None)
  Receive Date: 20140820
  Receipt Date: 20140820
  Transmission Date: 20150326
  Serious: No
  Sender: FDA-Public Use
  Company Number: None

PATIENT
  Age: 55 Year
  Sex: Female

DRUGS (1)
  1. TECFIDERA [Suspect]
     Active Substance: DIMETHYL FUMARATE
     Dosage: 1 CAPSULE BID ORAL
     Route: 048

REACTIONS (2)
  - Extremity contracture [None]
  - Asthenia [None]

NARRATIVE: CASE EVENT DATE: 20140819
